FAERS Safety Report 5130378-5 (Version None)
Quarter: 2006Q4

REPORT INFORMATION
  Report Type: 
  Country: None (occurrence: None)
  Receive Date: 20061019
  Receipt Date: 20060301
  Transmission Date: 20070319
  Serious: Yes (Death, Hospitalization)
  Sender: FDA-Public Use
  Company Number: IE-NOVOPROD-251264

PATIENT
  Age: 65 Year
  Weight: 83 kg

DRUGS (40)
  1. LEVEMIR [Suspect]
     Indication: INSULIN-REQUIRING TYPE II DIABETES MELLITUS
     Dosage: 16 IU, QD
     Route: 058
     Dates: start: 20050805, end: 20050921
  2. MST                                /00036302/ [Concomitant]
     Dosage: 2.5 MG, QD
     Dates: start: 20050920, end: 20050921
  3. PREDNISOLONE [Concomitant]
     Dosage: 5 MG, QD
     Route: 048
     Dates: start: 20050731
  4. ACETAMINOPHEN [Concomitant]
     Dosage: 1 G, QID
     Route: 048
     Dates: start: 20050905, end: 20050921
  5. PULMICORT [Concomitant]
     Dosage: 1 MG, BID
     Dates: start: 20050810, end: 20050921
  6. SALINE                             /00075401/ [Concomitant]
     Dosage: QDS
     Dates: start: 20050810, end: 20050921
  7. SEVREDOL [Concomitant]
     Dosage: 10 MG, UNK
     Dates: start: 20050919, end: 20050920
  8. SPIRIVA [Concomitant]
     Dosage: 18 UG, QD
     Route: 048
     Dates: start: 20050731, end: 20050921
  9. SPIRONOLACTONE [Concomitant]
     Dosage: 25 MG, BID
     Dates: start: 20050731
  10. SPIRONOLACTONE [Concomitant]
     Dosage: 50 MG, BID
     Dates: start: 20050819, end: 20050909
  11. SPIRONOLACTONE [Concomitant]
     Dosage: 25 MG, BID
     Dates: start: 20050917, end: 20050921
  12. STEMETIL                           /00013301/ [Concomitant]
     Dosage: 12.5 MG, TID
     Dates: start: 20050919, end: 20050920
  13. PIPERACILLIN AND TAZOBACTAM [Concomitant]
     Dosage: 4.5 G, TID
     Dates: start: 20050830, end: 20050911
  14. TRAMADOL HCL [Concomitant]
     Dosage: 50-100 MG, PRN
     Dates: start: 20050820, end: 20050910
  15. ALLOPURINOL [Concomitant]
     Dosage: 300 MG, QD
     Route: 048
     Dates: start: 20050731
  16. AMINOPHYLLINE [Concomitant]
     Dosage: 225 MG, QD
     Route: 048
     Dates: start: 20050913, end: 20050921
  17. AMIODARONE HCL [Concomitant]
     Dosage: 200 UNK, BID
     Route: 048
     Dates: start: 20050830, end: 20050907
  18. AMIODARONE HCL [Concomitant]
     Dosage: 200 MG, QD
     Route: 048
     Dates: start: 20050907, end: 20050921
  19. ASPIRIN [Concomitant]
     Dosage: 75 MG, QD
     Route: 048
     Dates: start: 20050731
  20. ASPIRIN [Concomitant]
     Dosage: 75 MG, QD
     Route: 048
     Dates: start: 20050902, end: 20050920
  21. ATROVENT [Concomitant]
     Dosage: 500 UG/6XD
     Route: 048
     Dates: start: 20050731, end: 20050921
  22. BISOPROLOL FUMARATE [Concomitant]
     Dosage: 2.5 MG, QD
     Route: 048
  23. BUMETANIDE [Concomitant]
     Dosage: 1 MG, QD
     Route: 048
     Dates: start: 20050914, end: 20050921
  24. BUMETANIDE [Concomitant]
     Dosage: 1 MG, QD
     Route: 048
     Dates: start: 20050731, end: 20050815
  25. BUMETANIDE [Concomitant]
     Dosage: 2 UNK, QD
     Route: 048
     Dates: start: 20050816, end: 20050912
  26. COMBIVENT                          /01033501/ [Concomitant]
     Dosage: 1X TDS
     Dates: start: 20050731, end: 20050921
  27. DIAZEPAM [Concomitant]
     Dosage: 5 MG, QD
     Route: 048
     Dates: start: 20050731, end: 20050906
  28. DIGOXIN [Concomitant]
     Dosage: .125 MG, QD
     Route: 048
     Dates: start: 20050817, end: 20050819
  29. ENOXAPARIN SODIUM [Concomitant]
     Dosage: 40 MG, QD
     Route: 048
     Dates: start: 20050906, end: 20050921
  30. EXPUTEX [Concomitant]
     Dosage: 500 UG, QD
     Dates: start: 20050819, end: 20050921
  31. FRUSEMIDE                          /00032601/ [Concomitant]
     Dosage: 80 MG, QD
     Dates: start: 20050906, end: 20050906
  32. LACTULOSE [Concomitant]
     Dosage: 20 ML, UNK
     Dates: start: 20050920, end: 20050921
  33. LINEZOLID [Concomitant]
     Dates: start: 20050821, end: 20050829
  34. LOSEC                              /00661201/ [Concomitant]
     Dosage: 40 MG, QD
     Route: 048
     Dates: start: 20050810, end: 20050921
  35. MAGNESIUM SULPHATE                 /00167401/ [Concomitant]
     Dosage: TDS
     Dates: start: 20050830, end: 20050902
  36. MELOXICAM [Concomitant]
     Dosage: 7.5 MG, QD
     Route: 048
     Dates: start: 20050908, end: 20050913
  37. MEROPENEM [Concomitant]
     Dosage: 500 MG, QD
     Dates: start: 20050914, end: 20050921
  38. METFORMIN HCL [Concomitant]
     Dosage: 850 MG, BID
     Dates: start: 20050810, end: 20050914
  39. MORPHINE SUL INJ [Concomitant]
     Dosage: 10 MG, QD
     Route: 048
     Dates: start: 20050910, end: 20050920
  40. MOVICOL                            /01053601/ [Concomitant]
     Dosage: UNK, BID
     Dates: start: 20050920, end: 20050921

REACTIONS (14)
  - ABDOMINAL DISTENSION [None]
  - ADRENAL MASS [None]
  - ASTHENIA [None]
  - ATRIAL FIBRILLATION [None]
  - CARDIAC FAILURE CONGESTIVE [None]
  - DISEASE RECURRENCE [None]
  - GENERAL PHYSICAL HEALTH DETERIORATION [None]
  - HAEMOPTYSIS [None]
  - HYPOGLYCAEMIA [None]
  - HYPOTENSION [None]
  - LUNG NEOPLASM MALIGNANT [None]
  - PLEURAL EFFUSION [None]
  - RESPIRATORY TRACT INFECTION [None]
  - STAPHYLOCOCCAL INFECTION [None]
